FAERS Safety Report 6349139-4 (Version None)
Quarter: 2009Q3

REPORT INFORMATION
  Report Type: 
  Country: None (occurrence: None)
  Receive Date: 20090911
  Receipt Date: 20090521
  Transmission Date: 20100115
  Serious: No
  Sender: FDA-Public Use
  Company Number: US-BAYER-200921615NA

PATIENT
  Age: 55 Year
  Sex: Female
  Weight: 54 kg

DRUGS (1)
  1. ANGELIQ [Suspect]
     Indication: HORMONE REPLACEMENT THERAPY
     Route: 048
     Dates: start: 20090501

REACTIONS (1)
  - POSTMENOPAUSAL HAEMORRHAGE [None]
